FAERS Safety Report 4323429-9 (Version None)
Quarter: 2004Q1

REPORT INFORMATION
  Report Type: 
  Country: None (occurrence: None)
  Receive Date: 20040322
  Receipt Date: 20040312
  Transmission Date: 20041129
  Serious: Yes (Other)
  Sender: FDA-Public Use
  Company Number: 2003-09-1644

PATIENT
  Age: 53 Year
  Sex: Male

DRUGS (2)
  1. PEG-INTRON [Suspect]
     Indication: HEPATITIS C
  2. REBETOL [Suspect]
     Indication: HEPATITIS C

REACTIONS (9)
  - BIOPSY SKIN ABNORMAL [None]
  - CELLULITIS [None]
  - INJECTION SITE ULCER [None]
  - LYMPHOCYTIC INFILTRATION [None]
  - PIGMENTATION DISORDER [None]
  - SCAB [None]
  - SCAR [None]
  - SKIN NECROSIS [None]
  - TOXIC SKIN ERUPTION [None]
